FAERS Safety Report 8072036-3 (Version None)
Quarter: 2012Q1

REPORT INFORMATION
  Report Type: 
  Country: None (occurrence: None)
  Receive Date: 20120124
  Receipt Date: 20120124
  Transmission Date: 20120608
  Serious: Yes (Death, Hospitalization)
  Sender: FDA-Public Use
  Company Number: None

PATIENT
  Age: 61 Year
  Sex: Male
  Weight: 81.4 kg

DRUGS (2)
  1. TACROLIMUS [Suspect]
     Indication: HEPATITIS C
     Dosage: 0.5 MG QWEEK PO
     Route: 048
     Dates: start: 20080114
  2. TELAPREVIR [Suspect]
     Indication: HEPATITIS C
     Dosage: 750 MG TID PO
     Route: 048
     Dates: start: 20111104

REACTIONS (27)
  - HYPERCHLORAEMIA [None]
  - INTESTINAL ISCHAEMIA [None]
  - SYSTEMIC INFLAMMATORY RESPONSE SYNDROME [None]
  - COMPLICATIONS OF TRANSPLANTED LIVER [None]
  - HEPATIC STEATOSIS [None]
  - ABDOMINAL PAIN [None]
  - FLUID OVERLOAD [None]
  - ACUTE RESPIRATORY FAILURE [None]
  - PULMONARY OEDEMA [None]
  - HEPATITIS C [None]
  - HAEMOGLOBIN DECREASED [None]
  - NAUSEA [None]
  - ASPIRATION [None]
  - LACTIC ACIDOSIS [None]
  - RENAL FAILURE ACUTE [None]
  - INTESTINAL INFARCTION [None]
  - TROPONIN INCREASED [None]
  - THERAPEUTIC RESPONSE DECREASED [None]
  - HEPATIC FIBROSIS [None]
  - DIARRHOEA [None]
  - RESPIRATORY ACIDOSIS [None]
  - SHOCK [None]
  - LUNG INFECTION [None]
  - VOMITING [None]
  - DEHYDRATION [None]
  - SEPSIS [None]
  - BACTERIAL TRANSLOCATION [None]
